APPROVED DRUG PRODUCT: METHYLPHENIDATE HYDROCHLORIDE
Active Ingredient: METHYLPHENIDATE HYDROCHLORIDE
Strength: 36MG
Dosage Form/Route: TABLET, EXTENDED RELEASE;ORAL
Application: A206726 | Product #003 | TE Code: AB
Applicant: AUROLIFE PHARMA LLC
Approved: Oct 21, 2016 | RLD: No | RS: No | Type: RX